FAERS Safety Report 6527353-2 (Version None)
Quarter: 2010Q1

REPORT INFORMATION
  Report Type: 
  Country: None (occurrence: None)
  Receive Date: 20100105
  Receipt Date: 20091219
  Transmission Date: 20100710
  Serious: Yes (Other)
  Sender: FDA-Public Use
  Company Number: US-BAYER-200942612NA

PATIENT
  Age: 59 Year
  Sex: Female

DRUGS (8)
  1. BETASERON [Suspect]
     Indication: DRUG USE FOR UNKNOWN INDICATION
     Dosage: TOTAL DAILY DOSE: 2 MIU
     Route: 058
     Dates: start: 20091201
  2. BETASERON [Suspect]
     Route: 058
  3. TOPAMAX [Concomitant]
     Dosage: TOTAL DAILY DOSE: 300 MG
  4. TOPAMAX [Concomitant]
     Dosage: TOTAL DAILY DOSE: 200 MG
  5. LORAZEPAM [Concomitant]
  6. BUTALBITAL [Concomitant]
     Indication: HEADACHE
     Dates: end: 20091219
  7. AMARIPOLZE [Concomitant]
     Indication: ABDOMINAL PAIN UPPER
  8. CYMBALTA [Concomitant]
     Indication: DEPRESSION

REACTIONS (8)
  - ABDOMINAL PAIN UPPER [None]
  - ANXIETY [None]
  - CONVULSION [None]
  - GRAND MAL CONVULSION [None]
  - HEADACHE [None]
  - LOSS OF CONSCIOUSNESS [None]
  - PRURITUS GENERALISED [None]
  - SUICIDAL IDEATION [None]
